FAERS Safety Report 7665737-X (Version None)
Quarter: 2011Q3

REPORT INFORMATION
  Report Type: 
  Country: None (occurrence: None)
  Receive Date: 20110806
  Receipt Date: 20110509
  Transmission Date: 20111222
  Serious: No
  Sender: FDA-Public Use
  Company Number: US-ABBOTT-11P-163-0724226-00

PATIENT
  Sex: Male
  Weight: 90.8 kg

DRUGS (8)
  1. UNKNOWN MEDICATION [Concomitant]
  2. UNKNOWN MEDICATION [Concomitant]
  3. NIASPAN [Suspect]
     Indication: PRODUCT USED FOR UNKNOWN INDICATION
     Dosage: AT BEDTIME
     Dates: start: 20110101
  4. ASPIRIN [Concomitant]
     Indication: PRODUCT USED FOR UNKNOWN INDICATION
  5. BLOOD PRESSURE MEDICATION [Concomitant]
     Indication: PRODUCT USED FOR UNKNOWN INDICATION
  6. UNKNOWN MEDICATION [Concomitant]
     Indication: PRODUCT USED FOR UNKNOWN INDICATION
  7. UNKNOWN MEDICATION [Concomitant]
  8. UNKNOWN MEDICATION [Concomitant]

REACTIONS (2)
  - PRURITUS GENERALISED [None]
  - HOT FLUSH [None]
